FAERS Safety Report 6732043-7 (Version None)
Quarter: 2010Q2

REPORT INFORMATION
  Report Type: 
  Country: None (occurrence: None)
  Receive Date: 20100519
  Receipt Date: 20100512
  Transmission Date: 20101027
  Serious: Yes (Death, Other)
  Sender: FDA-Public Use
  Company Number: BE-CELGENEUS-013-50794-09090074

PATIENT
  Sex: Male

DRUGS (1)
  1. VIDAZA [Suspect]
     Route: 065
     Dates: start: 20090303

REACTIONS (6)
  - ACUTE MYELOID LEUKAEMIA [None]
  - ARTHRITIS BACTERIAL [None]
  - BLOOD CULTURE POSITIVE [None]
  - DISEASE PROGRESSION [None]
  - ESCHERICHIA INFECTION [None]
  - SEPSIS [None]
